FAERS Safety Report 16059398 (Version 4)
Quarter: 2019Q2

REPORT INFORMATION
  Report Type: Report from Study
  Country: US (occurrence: US)
  Receive Date: 20190311
  Receipt Date: 20190627
  Transmission Date: 20190711
  Serious: Yes (Hospitalization)
  Sender: FDA-Public Use
  Company Number: PHEH2019US009967

PATIENT
  Sex: Male

DRUGS (1)
  1. ENTRESTO [Suspect]
     Active Substance: SACUBITRIL\VALSARTAN
     Indication: PRODUCT USED FOR UNKNOWN INDICATION
     Route: 048

REACTIONS (8)
  - Peripheral swelling [Unknown]
  - Contusion [Unknown]
  - Drug ineffective [Unknown]
  - Skin discolouration [Unknown]
  - Ejection fraction decreased [Unknown]
  - Cellulitis [Unknown]
  - Fall [Unknown]
  - Balance disorder [Unknown]
